FAERS Safety Report 7562517-0 (Version None)
Quarter: 2011Q2

REPORT INFORMATION
  Report Type: 
  Country: None (occurrence: None)
  Receive Date: 20110621
  Receipt Date: 20110621
  Transmission Date: 20111010
  Serious: Yes (Hospitalization)
  Sender: FDA-Public Use
  Company Number: None

PATIENT
  Age: 72 Year
  Sex: Male
  Weight: 65.318 kg

DRUGS (2)
  1. ERLOTINIB HYDROCHLORIDE [Suspect]
     Indication: NON-SMALL CELL LUNG CANCER
     Dosage: 100MG DAILY PO
     Route: 048
     Dates: start: 20090522, end: 20110531
  2. BEVACIZUMAB [Suspect]
     Indication: NON-SMALL CELL LUNG CANCER
     Dosage: 15MG/KG ONCE EVERY 21 DAYS IV DRIP
     Route: 041
     Dates: start: 20090522, end: 20110511

REACTIONS (6)
  - MENTAL DISORDER [None]
  - DEMENTIA [None]
  - ATAXIA [None]
  - CONFUSIONAL STATE [None]
  - DELUSION [None]
  - GENERAL PHYSICAL HEALTH DETERIORATION [None]
